FAERS Safety Report 18628360 (Version 1)
Quarter: 2020Q4

REPORT INFORMATION
  Report Type: Spontaneous
  Country: NL (occurrence: NL)
  Receive Date: 20201217
  Receipt Date: 20201217
  Transmission Date: 20210114
  Serious: Yes (Congenital Anomaly)
  Sender: FDA-Public Use
  Company Number: NL-TEVA-2020-NL-1857997

PATIENT
  Age: 0 Week
  Sex: Male
  Weight: 7.5 kg

DRUGS (3)
  1. PARACETAMOL TABLET  500MG / BRAND NAME NOT SPECIFIED [Concomitant]
     Dosage: 500 MG (MILLIGRAM), THERAPY START DATE; THERAPY END DATE : ASKED BUT UNKNOWN
  2. TEMAZEPAM CAPSULE 10MG / BRAND NAME NOT SPECIFIED [Suspect]
     Active Substance: TEMAZEPAM
     Indication: SLEEP DISORDER
     Dosage: FOR THE NIGHT IF NECESSARY 1 CAPSULE, 10 MG, THERAPY START DATE; THERAPY END DATE : ASKU
  3. MISOPROSTOL TABLET 200UG / CYTOTEC TABLET 200MCG [Concomitant]
     Dosage: LOW DOSAGE FOR PRIMING, THERAPY START DATE; THERAPY END DATE : ASKED BUT UNKNOWN

REACTIONS (2)
  - Congenital tracheomalacia [Unknown]
  - Maternal exposure during pregnancy [Unknown]

NARRATIVE: CASE EVENT DATE: 20200313
